FAERS Safety Report 18396675 (Version 1)
Quarter: 2020Q4

REPORT INFORMATION
  Report Type: Spontaneous
  Country: US (occurrence: US)
  Receive Date: 20201019
  Receipt Date: 20201019
  Transmission Date: 20210114
  Serious: Yes (Other)
  Sender: FDA-Public Use
  Company Number: US-DRREDDYS-USA/USA/20/0128045

PATIENT

DRUGS (2)
  1. RANITIDINE CAPSULES [Suspect]
     Active Substance: RANITIDINE
     Indication: PRODUCT USED FOR UNKNOWN INDICATION
     Route: 048
     Dates: start: 201405, end: 201909
  2. RANITIDINE CAPSULES [Suspect]
     Active Substance: RANITIDINE
     Route: 048
     Dates: start: 201405, end: 201909

REACTIONS (1)
  - Breast cancer [Unknown]

NARRATIVE: CASE EVENT DATE: 20170117
